FAERS Safety Report 10078639 (Version 5)
Quarter: 2014Q4

REPORT INFORMATION
  Report Type: Spontaneous
  Country: US (occurrence: None)
  Receive Date: 20140411
  Receipt Date: 20141024
  Transmission Date: 20150528
  Serious: Yes (Hospitalization, Other)
  Sender: FDA-Public Use
  Company Number: 2014-US-004109

PATIENT
  Age: 61 Year
  Sex: Female

DRUGS (11)
  1. ULTRAM (TRAMADOL HYDROCHLORIDE) [Concomitant]
     Active Substance: TRAMADOL HYDROCHLORIDE
  2. WELLBUTRIN [Concomitant]
     Active Substance: BUPROPION HYDROCHLORIDE
  3. ASPIRIN (ACETYLSALICYLIC ACID) [Concomitant]
     Active Substance: ASPIRIN
  4. LOPRESSOR [Concomitant]
     Active Substance: METOPROLOL TARTRATE
  5. NIACIN. [Concomitant]
     Active Substance: NIACIN
  6. XYREM [Suspect]
     Active Substance: SODIUM OXYBATE
     Indication: HYPERSOMNIA
     Route: 048
     Dates: start: 201112, end: 201112
  7. AMBIEN [Concomitant]
     Active Substance: ZOLPIDEM TARTRATE
  8. PLAVIX [Concomitant]
     Active Substance: CLOPIDOGREL BISULFATE
  9. VALIUM [Concomitant]
     Active Substance: DIAZEPAM
  10. VICODIN [Concomitant]
     Active Substance: ACETAMINOPHEN\HYDROCODONE BITARTRATE
  11. LOPRESSOR [Concomitant]
     Active Substance: METOPROLOL TARTRATE

REACTIONS (11)
  - Pneumonia [None]
  - Drug administration error [None]
  - Procedural pain [None]
  - Incorrect dose administered [None]
  - Surgery [None]
  - Fall [None]
  - Pain [None]
  - Arthralgia [None]
  - Incision site complication [None]
  - Off label use [None]
  - Back disorder [None]

NARRATIVE: CASE EVENT DATE: 20140327
